FAERS Safety Report 5147342-2 (Version None)
Quarter: 2006Q4

REPORT INFORMATION
  Report Type: 
  Country: None (occurrence: None)
  Receive Date: 20061103
  Receipt Date: 20061016
  Transmission Date: 20070319
  Serious: Yes (Hospitalization, Other)
  Sender: FDA-Public Use
  Company Number: 2004-07-1309

PATIENT
  Age: 43 Year
  Sex: Male
  Weight: 70.7611 kg

DRUGS (17)
  1. POSACONAZOLE [Suspect]
     Indication: FUNGAL INFECTION
     Dosage: 400 MG; BID; PO
     Route: 048
     Dates: start: 20021003, end: 20040805
  2. REGLAN [Concomitant]
  3. SYNTHROID [Concomitant]
  4. MEGACE [Concomitant]
  5. LISINOPRIL [Concomitant]
  6. PROTONIX [Concomitant]
  7. PREDNISONE TAB [Concomitant]
  8. PHOSLO [Concomitant]
  9. LANTUS [Concomitant]
  10. HUMALOG (INSULIN ANALOG) [Concomitant]
  11. TRAZODONE HCL [Concomitant]
  12. ECONOPRED [Concomitant]
  13. OFLOXACIN [Concomitant]
  14. ELAVIL [Concomitant]
  15. NORVASC [Concomitant]
  16. EPOGEN [Concomitant]
  17. IMODIUM [Concomitant]

REACTIONS (12)
  - ATRIAL FIBRILLATION [None]
  - ATRIOVENTRICULAR BLOCK FIRST DEGREE [None]
  - BLOOD PRESSURE DECREASED [None]
  - CARDIAC FAILURE CONGESTIVE [None]
  - DILATATION ATRIAL [None]
  - FLUID OVERLOAD [None]
  - FUNGAL INFECTION [None]
  - INFECTED SKIN ULCER [None]
  - MITRAL VALVE INCOMPETENCE [None]
  - MYOCARDIAL INFARCTION [None]
  - PYREXIA [None]
  - VENTRICULAR TACHYCARDIA [None]
